FAERS Safety Report 25885681 (Version 1)
Quarter: 2025Q4

REPORT INFORMATION
  Report Type: Spontaneous
  Country: US (occurrence: US)
  Receive Date: 20251006
  Receipt Date: 20251006
  Transmission Date: 20260118
  Serious: Yes (Other)
  Sender: BAUSCH AND LOMB
  Company Number: US-BAUSCH-BH-2025-017758

PATIENT
  Age: 26 Year
  Sex: Male

DRUGS (1)
  1. DEXAMETHASONE [Suspect]
     Active Substance: DEXAMETHASONE
     Indication: Vasogenic cerebral oedema
     Route: 065

REACTIONS (3)
  - Psychotic disorder [Recovered/Resolved]
  - Treatment failure [Unknown]
  - Weight increased [Unknown]
